FAERS Safety Report 6151617-8 (Version None)
Quarter: 2009Q2

REPORT INFORMATION
  Report Type: 
  Country: None (occurrence: None)
  Receive Date: 20090410
  Receipt Date: 20090331
  Transmission Date: 20091009
  Serious: Yes (Other)
  Sender: FDA-Public Use
  Company Number: US-PFIZER INC-2006040316

PATIENT
  Sex: Female

DRUGS (4)
  1. PROVERA [Suspect]
     Indication: MENOPAUSAL SYMPTOMS
     Dosage: 2.5 MG, UNK
     Route: 048
     Dates: start: 19930101, end: 19950101
  2. PREMARIN [Suspect]
     Indication: MENOPAUSAL SYMPTOMS
     Dosage: 0.625 MG, UNK
     Route: 065
     Dates: start: 19930101, end: 19950101
  3. PREMPRO [Suspect]
     Indication: MENOPAUSAL SYMPTOMS
     Dosage: 2.5 MG, UNK
     Route: 065
     Dates: start: 19960101, end: 20020101
  4. FOSAMAX [Concomitant]
     Indication: OSTEOPOROSIS
     Dosage: 70 MG, UNK
     Dates: start: 20011201, end: 20050301

REACTIONS (1)
  - BREAST CANCER [None]
